FAERS Safety Report 12101143 (Version 4)
Quarter: 2016Q2

REPORT INFORMATION
  Report Type: Report from Study
  Country: DE (occurrence: DE)
  Receive Date: 20160222
  Receipt Date: 20160603
  Transmission Date: 20160815
  Serious: Yes (Other)
  Sender: FDA-Public Use
  Company Number: DE-BRISTOL-MYERS SQUIBB COMPANY-BMS-2016-011984

PATIENT
  Age: 72 Year
  Sex: Female
  Weight: 100 kg

DRUGS (1)
  1. APIXABAN [Suspect]
     Active Substance: APIXABAN
     Indication: CEREBROVASCULAR ACCIDENT PROPHYLAXIS
     Dosage: 5 MG, BID
     Route: 048
     Dates: start: 20130814

REACTIONS (3)
  - Hypertensive crisis [Unknown]
  - Epistaxis [Unknown]
  - Acute coronary syndrome [Unknown]

NARRATIVE: CASE EVENT DATE: 20151201
